FAERS Safety Report 10070095 (Version 1)
Quarter: 2014Q2

REPORT INFORMATION
  Report Type: Spontaneous
  Country: US (occurrence: None)
  Receive Date: 20140409
  Receipt Date: 20140409
  Transmission Date: 20141212
  Serious: Yes (Other)
  Sender: FDA-Public Use
  Company Number: None

PATIENT
  Sex: 0

DRUGS (1)
  1. SPIRIVA [Suspect]
     Dosage: 5 CPASULES?RESPIRATORY
     Route: 055
     Dates: start: 20140301, end: 20140308

REACTIONS (1)
  - Product quality issue [None]
